FAERS Safety Report 9503076 (Version 2)
Quarter: 2013Q4

REPORT INFORMATION
  Report Type: Spontaneous
  Country: US (occurrence: US)
  Receive Date: 20130906
  Receipt Date: 20131016
  Transmission Date: 20140711
  Serious: Yes (Other)
  Sender: FDA-Public Use
  Company Number: US-PFIZER INC-2013255288

PATIENT
  Age: 66 Year
  Sex: Female
  Weight: 77.1 kg

DRUGS (8)
  1. PREMPRO [Suspect]
     Indication: HORMONE REPLACEMENT THERAPY
     Dosage: (ESTROGENS CONJUGATED) 0.625MG / (MEDROXYPROGESTERONE ACETATE) 2.5 MG,1 DF, 1X/DAY
     Dates: start: 2003
  2. LYRICA [Suspect]
     Indication: ARTHRALGIA
     Dosage: 200 MG, 1X/DAY
  3. LYRICA [Suspect]
     Indication: RHEUMATOID ARTHRITIS
     Dosage: 75 MG, 2X/DAY
  4. LYRICA [Suspect]
     Indication: OSTEOARTHRITIS
  5. SIMPONI [Concomitant]
     Indication: RHEUMATOID ARTHRITIS
     Dosage: 50 MG, UNK
  6. SIMPONI [Concomitant]
     Indication: OSTEOARTHRITIS
  7. METHOTREXATE [Concomitant]
     Indication: RHEUMATOID ARTHRITIS
     Dosage: 20 MG (EIGHT TABLETS OF 2.5MG), WEEKLY
  8. METHOTREXATE [Concomitant]
     Indication: OSTEOARTHRITIS

REACTIONS (2)
  - Vasculitis [Not Recovered/Not Resolved]
  - Drug intolerance [Unknown]
